FAERS Safety Report 7322927-3 (Version None)
Quarter: 2011Q1

REPORT INFORMATION
  Report Type: 
  Country: None (occurrence: None)
  Receive Date: 20110301
  Receipt Date: 20110215
  Transmission Date: 20110831
  Serious: Yes (Other)
  Sender: FDA-Public Use
  Company Number: PHHY2011US12602

PATIENT
  Age: 41 Year
  Sex: Female

DRUGS (5)
  1. ATORVASTATIN [Concomitant]
  2. METFORMIN [Concomitant]
  3. CLOZAPINE [Suspect]
     Indication: PSYCHOTIC DISORDER
     Dosage: 650 MG
  4. OXCARBAZEPINE [Concomitant]
  5. LEVOTHYROXINE [Concomitant]

REACTIONS (10)
  - ALANINE AMINOTRANSFERASE INCREASED [None]
  - LUNG INFILTRATION [None]
  - PULMONARY OEDEMA [None]
  - ALVEOLITIS [None]
  - DYSPNOEA [None]
  - PULMONARY TOXICITY [None]
  - LIVER FUNCTION TEST ABNORMAL [None]
  - RED BLOOD CELL SEDIMENTATION RATE INCREASED [None]
  - ASPARTATE AMINOTRANSFERASE INCREASED [None]
  - THROMBOCYTOSIS [None]
